FAERS Safety Report 4421590-9 (Version None)
Quarter: 2004Q3

REPORT INFORMATION
  Report Type: 
  Country: None (occurrence: None)
  Receive Date: 20040804
  Receipt Date: 20040723
  Transmission Date: 20050211
  Serious: Yes (Hospitalization)
  Sender: FDA-Public Use
  Company Number: AT-JNJFOC-20040605068

PATIENT
  Age: 65 Year
  Sex: Female

DRUGS (10)
  1. CAELYX (DOXORUBICIN HYDROCHLORIDE) LIPOSOME INJECTION [Suspect]
     Indication: BREAST CANCER METASTATIC
     Dosage: 40 MG/M2 X 1 CYCLE
     Dates: start: 20040227, end: 20040227
  2. RADIATION THERAPY (OTHER DIAGNOSTIC AGENTS) [Suspect]
     Indication: BREAST CANCER METASTATIC
     Dates: start: 20040122, end: 20040213
  3. AMITRIPTYLINE HCL [Concomitant]
  4. TRAMADOL HCL [Concomitant]
  5. PANTOPRAZOLE (PANTOPRAZOLE) [Concomitant]
  6. PREDNISOLONE [Concomitant]
  7. HALOPERIDOL [Concomitant]
  8. FENTANYL [Concomitant]
  9. IPRATROPIUM (IPRATOROPIUM) AEROSOLS [Concomitant]
  10. LACTULOSE [Concomitant]

REACTIONS (2)
  - INFECTION [None]
  - RADIATION PNEUMONITIS [None]
